FAERS Safety Report 10530455 (Version 1)
Quarter: 2014Q4

REPORT INFORMATION
  Report Type: Spontaneous
  Country: FR (occurrence: None)
  Receive Date: 20141017
  Receipt Date: 20141017
  Transmission Date: 20150528
  Serious: Yes (Hospitalization)
  Sender: FDA-Public Use
  Company Number: 2572565

PATIENT
  Age: 62 Year
  Sex: Male
  Weight: 60.9 kg

DRUGS (13)
  1. CARBOPLATIN. [Suspect]
     Active Substance: CARBOPLATIN
     Indication: SMALL CELL LUNG CANCER
  2. ATARAX [Concomitant]
     Active Substance: HYDROXYZINE\HYDROXYZINE HYDROCHLORIDE
  3. SOLUPRED [Concomitant]
     Active Substance: PREDNISOLONE
  4. TEVAGRASTIM [Concomitant]
     Active Substance: FILGRASTIM
  5. ETOPOSIDE. [Suspect]
     Active Substance: ETOPOSIDE
     Indication: SMALL CELL LUNG CANCER
  6. INEXIUM /01479302/ [Concomitant]
     Active Substance: ESOMEPRAZOLE MAGNESIUM
  7. PRIMPERAN [Concomitant]
     Active Substance: METOCLOPRAMIDE HYDROCHLORIDE
  8. DIFFU K [Concomitant]
     Active Substance: POTASSIUM CHLORIDE
  9. INNOHEP [Concomitant]
     Active Substance: TINZAPARIN SODIUM
  10. ALPRAZOLAM. [Concomitant]
     Active Substance: ALPRAZOLAM
  11. AUGMENTIN [Concomitant]
     Active Substance: AMOXICILLIN\CLAVULANATE POTASSIUM
  12. EMEND [Concomitant]
     Active Substance: APREPITANT
  13. TOPALGIC [Concomitant]
     Active Substance: TRAMADOL

REACTIONS (6)
  - Neutropenic colitis [None]
  - Thrombocytopenia [None]
  - Septic shock [None]
  - Ileus [None]
  - Pneumonia aspiration [None]
  - Febrile neutropenia [None]

NARRATIVE: CASE EVENT DATE: 20140803
